FAERS Safety Report 21285836 (Version 6)
Quarter: 2024Q4

REPORT INFORMATION
  Report Type: Spontaneous
  Country: CA (occurrence: CA)
  Receive Date: 20220902
  Receipt Date: 20241108
  Transmission Date: 20250114
  Serious: Yes (Death, Other)
  Sender: BRISTOL-MYERS SQUIBB COMPANY
  Company Number: CA-BRISTOL-MYERS SQUIBB COMPANY-2022-098929

PATIENT
  Age: 59 Year
  Sex: Female
  Weight: 68 kg

DRUGS (263)
  1. ORENCIA [Suspect]
     Active Substance: ABATACEPT
     Indication: Rheumatoid arthritis
     Dosage: UNK
     Route: 042
  2. ORENCIA [Suspect]
     Active Substance: ABATACEPT
     Dosage: UNK
     Route: 058
  3. ORENCIA [Suspect]
     Active Substance: ABATACEPT
     Dosage: UNK
     Route: 067
  4. ORENCIA [Suspect]
     Active Substance: ABATACEPT
     Indication: Rheumatoid arthritis
     Route: 048
  5. ORENCIA [Suspect]
     Active Substance: ABATACEPT
     Indication: Product used for unknown indication
  6. ACTEMRA [Concomitant]
     Active Substance: TOCILIZUMAB
     Indication: Rheumatoid arthritis
  7. ACTEMRA [Concomitant]
     Active Substance: TOCILIZUMAB
     Route: 061
  8. ACTEMRA [Concomitant]
     Active Substance: TOCILIZUMAB
     Route: 042
  9. ACTEMRA [Concomitant]
     Active Substance: TOCILIZUMAB
     Route: 058
  10. ACTEMRA [Concomitant]
     Active Substance: TOCILIZUMAB
     Route: 064
  11. ACTEMRA [Concomitant]
     Active Substance: TOCILIZUMAB
     Route: 064
  12. ARAVA [Concomitant]
     Active Substance: LEFLUNOMIDE
     Indication: Rheumatoid arthritis
     Dosage: UNK
     Route: 048
  13. ARAVA [Concomitant]
     Active Substance: LEFLUNOMIDE
     Dosage: UNK
     Route: 048
  14. ARAVA [Concomitant]
     Active Substance: LEFLUNOMIDE
     Dosage: UNK
     Route: 048
  15. ADALIMUMAB [Concomitant]
     Active Substance: ADALIMUMAB
     Indication: Rheumatoid arthritis
     Dosage: 40 MILLIGRAM
     Route: 058
  16. ADALIMUMAB [Concomitant]
     Active Substance: ADALIMUMAB
     Dosage: 40 MILLIGRAM
     Route: 064
  17. AZATHIOPRINE [Concomitant]
     Active Substance: AZATHIOPRINE
     Indication: Product used for unknown indication
  18. CIMZIA [Concomitant]
     Active Substance: CERTOLIZUMAB PEGOL
     Indication: Psoriasis
     Dosage: UNK
     Route: 058
  19. CIMZIA [Concomitant]
     Active Substance: CERTOLIZUMAB PEGOL
     Indication: Rheumatoid arthritis
     Dosage: UNK
  20. CIMZIA [Concomitant]
     Active Substance: CERTOLIZUMAB PEGOL
     Dosage: SOLUTION FOR INJECTION IN PRE-FILLED INJECTION
  21. CIMZIA [Concomitant]
     Active Substance: CERTOLIZUMAB PEGOL
     Dosage: SOLUTION FOR INJECTION IN PRE-FILLED SYRINGE
     Route: 058
  22. CIMZIA [Concomitant]
     Active Substance: CERTOLIZUMAB PEGOL
     Dosage: UNK
     Route: 048
  23. CIMZIA [Concomitant]
     Active Substance: CERTOLIZUMAB PEGOL
     Dosage: UNK
     Route: 064
  24. CERTOLIZUMAB PEGOL [Concomitant]
     Active Substance: CERTOLIZUMAB PEGOL
     Indication: Rheumatoid arthritis
     Route: 058
  25. ENBREL [Concomitant]
     Active Substance: ETANERCEPT
     Indication: Rheumatoid arthritis
  26. ENBREL [Concomitant]
     Active Substance: ETANERCEPT
     Route: 058
  27. ERELZI [Concomitant]
     Active Substance: ETANERCEPT-SZZS
     Indication: Rheumatoid arthritis
     Dosage: UNK
     Route: 058
  28. ERELZI [Concomitant]
     Active Substance: ETANERCEPT-SZZS
     Dosage: 50 MILLIGRAM, QWK
     Route: 058
  29. ERELZI [Concomitant]
     Active Substance: ETANERCEPT-SZZS
  30. HUMIRA [Concomitant]
     Active Substance: ADALIMUMAB
     Indication: Rheumatoid arthritis
     Route: 058
  31. HUMIRA [Concomitant]
     Active Substance: ADALIMUMAB
     Indication: Psoriatic arthropathy
     Dosage: SOLUTION SUBCUTANEOUS
     Route: 064
  32. HUMIRA [Concomitant]
     Active Substance: ADALIMUMAB
     Dosage: SOLUTION SUBCUTANEOUS
  33. HUMIRA [Concomitant]
     Active Substance: ADALIMUMAB
     Dosage: SOLUTION SUBCUTANEOUS
     Route: 058
  34. HUMIRA [Concomitant]
     Active Substance: ADALIMUMAB
     Dosage: SOLUTION SUBCUTANEOUS
     Route: 064
  35. HUMIRA [Concomitant]
     Active Substance: ADALIMUMAB
     Dosage: SOLUTION SUBCUTANEOUS
     Route: 064
  36. HUMIRA [Concomitant]
     Active Substance: ADALIMUMAB
     Dosage: SOLUTION SUBCUTANEOUS
  37. METHOTREXATE [Concomitant]
     Active Substance: METHOTREXATE
     Indication: Rheumatoid arthritis
     Dosage: 20 MILLIGRAM
     Route: 048
  38. METHOTREXATE [Concomitant]
     Active Substance: METHOTREXATE
     Dosage: 20 MILLIGRAM, QWK
     Route: 048
  39. METHOTREXATE [Concomitant]
     Active Substance: METHOTREXATE
     Route: 058
  40. METHOTREXATE [Concomitant]
     Active Substance: METHOTREXATE
     Route: 048
  41. METHOTREXATE [Concomitant]
     Active Substance: METHOTREXATE
     Route: 048
  42. METHOTREXATE [Concomitant]
     Active Substance: METHOTREXATE
     Route: 013
  43. METHOTREXATE [Concomitant]
     Active Substance: METHOTREXATE
     Route: 048
  44. METHOTREXATE [Concomitant]
     Active Substance: METHOTREXATE
     Route: 058
  45. METHOTREXATE [Concomitant]
     Active Substance: METHOTREXATE
     Route: 058
  46. METHOTREXATE [Concomitant]
     Active Substance: METHOTREXATE
     Route: 048
  47. METHOTREXATE [Concomitant]
     Active Substance: METHOTREXATE
     Route: 048
  48. METHOTREXATE [Concomitant]
     Active Substance: METHOTREXATE
     Route: 013
  49. METHOTREXATE [Concomitant]
     Active Substance: METHOTREXATE
  50. GOLIMUMAB [Concomitant]
     Active Substance: GOLIMUMAB
     Indication: Rheumatoid arthritis
  51. GOLIMUMAB [Concomitant]
     Active Substance: GOLIMUMAB
     Route: 058
  52. INFLIXIMAB [Concomitant]
     Active Substance: INFLIXIMAB
     Indication: Rheumatoid arthritis
     Dosage: UNK
     Route: 041
  53. INFLIXIMAB [Concomitant]
     Active Substance: INFLIXIMAB
     Indication: Crohn^s disease
     Dosage: UNK
     Route: 042
  54. OTEZLA [Concomitant]
     Active Substance: APREMILAST
     Indication: Product used for unknown indication
     Dosage: 3 MILLIGRAM, BID
     Route: 048
  55. OTEZLA [Concomitant]
     Active Substance: APREMILAST
     Dosage: UNK
  56. OTEZLA [Concomitant]
     Active Substance: APREMILAST
     Route: 048
  57. OTEZLA [Concomitant]
     Active Substance: APREMILAST
     Dosage: 3 MILLIGRAM
     Route: 048
  58. RITUXAN [Concomitant]
     Active Substance: RITUXIMAB
     Indication: Rheumatoid arthritis
     Dosage: UNK
     Route: 042
  59. RITUXAN [Concomitant]
     Active Substance: RITUXIMAB
     Dosage: UNK
     Route: 041
  60. USTEKINUMAB [Concomitant]
     Active Substance: USTEKINUMAB
     Indication: Product used for unknown indication
     Dosage: 45 MILLIGRAM
     Route: 058
  61. USTEKINUMAB [Concomitant]
     Active Substance: USTEKINUMAB
     Dosage: UNK
     Route: 058
  62. USTEKINUMAB [Concomitant]
     Active Substance: USTEKINUMAB
     Dosage: 1 DOSAGE FORM
     Route: 048
  63. REMICADE [Concomitant]
     Active Substance: INFLIXIMAB
     Indication: Rheumatoid arthritis
     Dosage: 400 MILLIGRAM
     Route: 042
  64. REMICADE [Concomitant]
     Active Substance: INFLIXIMAB
     Indication: Ankylosing spondylitis
     Dosage: 5 MILLIGRAM/KILOGRAM
     Route: 042
  65. REMICADE [Concomitant]
     Active Substance: INFLIXIMAB
     Indication: Crohn^s disease
     Dosage: POWDER FOR SOLUTION INTRAVENOUS
     Route: 042
  66. REMICADE [Concomitant]
     Active Substance: INFLIXIMAB
     Dosage: 500 MILLIGRAM
     Route: 042
  67. REMICADE [Concomitant]
     Active Substance: INFLIXIMAB
     Dosage: POWDER FOR SOLUTION FOR INFUSION
     Route: 042
  68. REMICADE [Concomitant]
     Active Substance: INFLIXIMAB
     Dosage: POWDER FOR SOLUTION INTRAVENOUS
     Route: 058
  69. SIMPONI [Concomitant]
     Active Substance: GOLIMUMAB
     Indication: Rheumatoid arthritis
     Dosage: 50 MILLIGRAM, QMO?SOLUTION SUBCUTANEOUS
     Route: 058
  70. SIMPONI [Concomitant]
     Active Substance: GOLIMUMAB
     Dosage: 50 MILLIGRAM, QMO?SOLUTION SUBCUTANEOUS
     Route: 058
  71. SIMPONI [Concomitant]
     Active Substance: GOLIMUMAB
     Route: 058
  72. SIMPONI [Concomitant]
     Active Substance: GOLIMUMAB
     Dosage: SOLUTION SUBCUTANEOUS
     Route: 058
  73. SIMPONI [Concomitant]
     Active Substance: GOLIMUMAB
     Dosage: SOLUTION SUBCUTANEOUS
     Route: 064
  74. SIMPONI [Concomitant]
     Active Substance: GOLIMUMAB
     Dosage: SOLUTION SUBCUTANEOUS
     Route: 042
  75. SIRUKUMAB [Concomitant]
     Active Substance: SIRUKUMAB
     Indication: Product used for unknown indication
     Dosage: UNK
     Route: 058
  76. SIRUKUMAB [Concomitant]
     Active Substance: SIRUKUMAB
  77. STELARA [Concomitant]
     Active Substance: USTEKINUMAB
     Indication: Rheumatoid arthritis
     Route: 058
  78. STELARA [Concomitant]
     Active Substance: USTEKINUMAB
     Dosage: SOLUTION SUBCUTANEOUS
     Route: 058
  79. STELARA [Concomitant]
     Active Substance: USTEKINUMAB
     Dosage: SOLUTION SUBCUTANEOUS
  80. SULFASALAZINE [Concomitant]
     Active Substance: SULFASALAZINE
     Indication: Rheumatoid arthritis
  81. SULFASALAZINE [Concomitant]
     Active Substance: SULFASALAZINE
     Route: 048
  82. SULFASALAZINE [Concomitant]
     Active Substance: SULFASALAZINE
     Dosage: 500 DOSAGE FORM
     Route: 048
  83. SULFASALAZINE [Concomitant]
     Active Substance: SULFASALAZINE
  84. SULFASALAZINE [Concomitant]
     Active Substance: SULFASALAZINE
     Route: 058
  85. SULFASALAZINE [Concomitant]
     Active Substance: SULFASALAZINE
     Route: 048
  86. SULFASALAZINE [Concomitant]
     Active Substance: SULFASALAZINE
     Dosage: 1 DOSAGE FORM
  87. SULFASALAZINE [Concomitant]
     Active Substance: SULFASALAZINE
     Route: 048
  88. SULFASALAZINE [Concomitant]
     Active Substance: SULFASALAZINE
     Route: 058
  89. SULFASALAZINE [Concomitant]
     Active Substance: SULFASALAZINE
     Route: 048
  90. SULFASALAZINE [Concomitant]
     Active Substance: SULFASALAZINE
  91. SULFASALAZINE [Concomitant]
     Active Substance: SULFASALAZINE
     Route: 064
  92. SULFASALAZINE [Concomitant]
     Active Substance: SULFASALAZINE
     Route: 064
  93. SULFASALAZINE [Concomitant]
     Active Substance: SULFASALAZINE
     Route: 048
  94. SULFASALAZINE [Concomitant]
     Active Substance: SULFASALAZINE
     Route: 048
  95. SULFASALAZINE [Concomitant]
     Active Substance: SULFASALAZINE
     Route: 058
  96. SULFASALAZINE [Concomitant]
     Active Substance: SULFASALAZINE
     Route: 048
  97. XELJANZ [Concomitant]
     Active Substance: TOFACITINIB CITRATE
     Indication: Rheumatoid arthritis
     Dosage: 5 MG, 2 EVERI 1 DAYS
     Route: 048
  98. XELJANZ [Concomitant]
     Active Substance: TOFACITINIB CITRATE
     Dosage: 5 MG, 2 EVERI 1 DAYS
     Route: 048
  99. XELJANZ [Concomitant]
     Active Substance: TOFACITINIB CITRATE
     Dosage: 5 MG, 2 EVERI 1 DAYS
     Route: 048
  100. XELJANZ [Concomitant]
     Active Substance: TOFACITINIB CITRATE
     Route: 048
  101. MINOCYCLINE [Concomitant]
     Active Substance: MINOCYCLINE HYDROCHLORIDE
     Indication: Product used for unknown indication
     Dosage: 400 MILLIGRAM, QD
  102. MINOCYCLINE [Concomitant]
     Active Substance: MINOCYCLINE HYDROCHLORIDE
     Dosage: UNK
  103. COSENTYX [Concomitant]
     Active Substance: SECUKINUMAB
     Indication: Psoriatic arthropathy
  104. RITUXIMAB [Concomitant]
     Active Substance: RITUXIMAB
     Indication: Product used for unknown indication
     Dosage: UNK
     Route: 042
  105. RITUXIMAB [Concomitant]
     Active Substance: RITUXIMAB
     Dosage: UNK
     Route: 041
  106. RITUXIMAB [Concomitant]
     Active Substance: RITUXIMAB
     Route: 042
  107. RITUXIMAB [Concomitant]
     Active Substance: RITUXIMAB
     Route: 041
  108. LEVOCETIRIZINE [Concomitant]
     Active Substance: LEVOCETIRIZINE
     Indication: Product used for unknown indication
     Dosage: UNK
  109. LEVOCETIRIZINE [Concomitant]
     Active Substance: LEVOCETIRIZINE
     Dosage: 400 MILLIGRAM, QD
  110. MORPHINE SULFATE [Concomitant]
     Active Substance: MORPHINE SULFATE
     Indication: Product used for unknown indication
  111. DOXYCYCLINE [Concomitant]
     Active Substance: DOXYCYCLINE
     Indication: Product used for unknown indication
     Dosage: UNK
  112. LEFLUNOMIDE [Concomitant]
     Active Substance: LEFLUNOMIDE
     Indication: Rheumatoid arthritis
     Dosage: 20 MILLIGRAM, QD
  113. PREDNISONE [Concomitant]
     Active Substance: PREDNISONE
     Indication: Rheumatoid arthritis
     Dosage: 40 MILLIGRAM
  114. PREDNISONE [Concomitant]
     Active Substance: PREDNISONE
     Indication: Condition aggravated
     Route: 048
  115. PREDNISONE [Concomitant]
     Active Substance: PREDNISONE
     Route: 064
  116. PREDNISONE [Concomitant]
     Active Substance: PREDNISONE
     Route: 048
  117. PREDNISONE [Concomitant]
     Active Substance: PREDNISONE
     Route: 048
  118. ASACOL [Concomitant]
     Active Substance: MESALAMINE
     Indication: Crohn^s disease
     Dosage: ENTERIC-COATED
  119. CETIRIZINE [Concomitant]
     Active Substance: CETIRIZINE HYDROCHLORIDE
     Indication: Rheumatoid arthritis
     Dosage: UNK
     Route: 048
  120. CETIRIZINE [Concomitant]
     Active Substance: CETIRIZINE HYDROCHLORIDE
     Dosage: UNK
  121. CETIRIZINE [Concomitant]
     Active Substance: CETIRIZINE HYDROCHLORIDE
     Dosage: UNK
     Route: 048
  122. CETIRIZINE [Concomitant]
     Active Substance: CETIRIZINE HYDROCHLORIDE
     Dosage: UNK
     Route: 064
  123. CORTISONE (HYDROCORTISONE) [Concomitant]
     Active Substance: HYDROCORTISONE
     Indication: Rheumatoid arthritis
     Dosage: 25 MILLIGRAM
     Route: 061
  124. CORTISONE (HYDROCORTISONE) [Concomitant]
     Active Substance: HYDROCORTISONE
     Dosage: 25 MILLIGRAM
     Route: 064
  125. DESOXIMETASONE [Concomitant]
     Active Substance: DESOXIMETASONE
     Indication: Rheumatoid arthritis
     Route: 048
  126. DESOXIMETASONE [Concomitant]
     Active Substance: DESOXIMETASONE
     Route: 058
  127. DESOXIMETASONE [Concomitant]
     Active Substance: DESOXIMETASONE
     Route: 048
  128. DESOXIMETASONE [Concomitant]
     Active Substance: DESOXIMETASONE
     Route: 061
  129. DESOXIMETASONE [Concomitant]
     Active Substance: DESOXIMETASONE
     Route: 067
  130. DESOXIMETASONE [Concomitant]
     Active Substance: DESOXIMETASONE
     Route: 003
  131. DICLOFENAC [Concomitant]
     Active Substance: DICLOFENAC
     Indication: Rheumatoid arthritis
     Dosage: UNK
  132. DICLOFENAC [Concomitant]
     Active Substance: DICLOFENAC
     Route: 047
  133. DICLOFENAC [Concomitant]
     Active Substance: DICLOFENAC
  134. FOLIC ACID [Concomitant]
     Active Substance: FOLIC ACID
     Indication: Rheumatoid arthritis
     Dosage: 25 MILLIGRAM
     Route: 048
  135. FOLIC ACID [Concomitant]
     Active Substance: FOLIC ACID
  136. FOLIC ACID [Concomitant]
     Active Substance: FOLIC ACID
     Route: 048
  137. FOLIC ACID [Concomitant]
     Active Substance: FOLIC ACID
  138. FOLIC ACID [Concomitant]
     Active Substance: FOLIC ACID
  139. FOLIC ACID [Concomitant]
     Active Substance: FOLIC ACID
     Route: 064
  140. FOLIC ACID [Concomitant]
     Active Substance: FOLIC ACID
     Route: 064
  141. FOLIC ACID [Concomitant]
     Active Substance: FOLIC ACID
     Route: 058
  142. FOLIC ACID [Concomitant]
     Active Substance: FOLIC ACID
     Route: 048
  143. FOSAMAX [Concomitant]
     Active Substance: ALENDRONATE SODIUM
     Indication: Rheumatoid arthritis
     Route: 048
  144. FOSAMAX [Concomitant]
     Active Substance: ALENDRONATE SODIUM
     Route: 058
  145. FOSAMAX [Concomitant]
     Active Substance: ALENDRONATE SODIUM
     Route: 005
  146. FOSAMAX [Concomitant]
     Active Substance: ALENDRONATE SODIUM
     Route: 016
  147. HYDROXYCHLOROQUINE [Concomitant]
     Active Substance: HYDROXYCHLOROQUINE
     Indication: Rheumatoid arthritis
  148. HYDROXYCHLOROQUINE [Concomitant]
     Active Substance: HYDROXYCHLOROQUINE
     Route: 048
  149. HYDROXYCHLOROQUINE [Concomitant]
     Active Substance: HYDROXYCHLOROQUINE
     Route: 058
  150. HYDROXYCHLOROQUINE [Concomitant]
     Active Substance: HYDROXYCHLOROQUINE
     Route: 048
  151. HYDROXYCHLOROQUINE [Concomitant]
     Active Substance: HYDROXYCHLOROQUINE
     Route: 048
  152. HYDROXYCHLOROQUINE [Concomitant]
     Active Substance: HYDROXYCHLOROQUINE
     Route: 048
  153. HYDROXYCHLOROQUINE [Concomitant]
     Active Substance: HYDROXYCHLOROQUINE
     Route: 005
  154. HYDROXYCHLOROQUINE [Concomitant]
     Active Substance: HYDROXYCHLOROQUINE
     Route: 064
  155. KEVZARA [Concomitant]
     Active Substance: SARILUMAB
     Indication: Rheumatoid arthritis
  156. KEVZARA [Concomitant]
     Active Substance: SARILUMAB
     Route: 064
  157. PHTHALYLSULFATHIAZOLE [Concomitant]
     Active Substance: PHTHALYLSULFATHIAZOLE
     Indication: Rheumatoid arthritis
  158. PHTHALYLSULFATHIAZOLE [Concomitant]
     Active Substance: PHTHALYLSULFATHIAZOLE
     Route: 048
  159. PREDNISONE [Concomitant]
     Active Substance: PREDNISONE
     Indication: Arthralgia
  160. PREDNISONE [Concomitant]
     Active Substance: PREDNISONE
     Indication: Rheumatoid arthritis
     Route: 048
  161. PREDNISONE [Concomitant]
     Active Substance: PREDNISONE
     Indication: Condition aggravated
  162. PREDNISONE [Concomitant]
     Active Substance: PREDNISONE
     Route: 048
  163. PREDNISONE [Concomitant]
     Active Substance: PREDNISONE
     Route: 042
  164. SECUKINUMAB [Concomitant]
     Active Substance: SECUKINUMAB
     Indication: Product used for unknown indication
  165. TOCILIZUMAB [Concomitant]
     Active Substance: TOCILIZUMAB
     Indication: Rheumatoid arthritis
     Route: 058
  166. TOCILIZUMAB [Concomitant]
     Active Substance: TOCILIZUMAB
     Route: 042
  167. TOCILIZUMAB [Concomitant]
     Active Substance: TOCILIZUMAB
     Route: 016
  168. TOCILIZUMAB [Concomitant]
     Active Substance: TOCILIZUMAB
     Route: 061
  169. TOCILIZUMAB [Concomitant]
     Active Substance: TOCILIZUMAB
     Dosage: 1 DOSAGE FORM
  170. INFLIXIMAB [Concomitant]
     Active Substance: INFLIXIMAB
     Indication: Crohn^s disease
     Dosage: UNK
     Route: 042
  171. INFLIXIMAB [Concomitant]
     Active Substance: INFLIXIMAB
     Indication: Rheumatoid arthritis
  172. DILAUDID [Concomitant]
     Active Substance: HYDROMORPHONE HYDROCHLORIDE
     Indication: Pain
  173. WELLBUTRIN [Concomitant]
     Active Substance: BUPROPION HYDROCHLORIDE
     Indication: Product used for unknown indication
     Dosage: TABLET (EXTENDED-RELEASE)
  174. HYDROMORPHONE HCL [Concomitant]
     Active Substance: HYDROMORPHONE HYDROCHLORIDE
     Indication: Product used for unknown indication
     Dosage: UNK
  175. HYDROMORPHONE HCL [Concomitant]
     Active Substance: HYDROMORPHONE HYDROCHLORIDE
     Route: 030
  176. BUPROPION [Concomitant]
     Active Substance: BUPROPION
     Indication: Product used for unknown indication
  177. SULFASALAZINE [Concomitant]
     Active Substance: SULFASALAZINE
     Indication: Rheumatoid arthritis
     Route: 048
  178. SULFASALAZINE [Concomitant]
     Active Substance: SULFASALAZINE
     Route: 064
  179. ALENDRONATE SODIUM [Concomitant]
     Active Substance: ALENDRONATE SODIUM
     Indication: Rheumatoid arthritis
     Dosage: 1.0 FEMTOGRAM
     Route: 048
  180. ALENDRONATE SODIUM [Concomitant]
     Active Substance: ALENDRONATE SODIUM
     Route: 064
  181. ALENDRONATE SODIUM [Concomitant]
     Active Substance: ALENDRONATE SODIUM
     Route: 016
  182. ALENDRONATE SODIUM [Concomitant]
     Active Substance: ALENDRONATE SODIUM
     Route: 058
  183. ALENDRONIC ACID [Concomitant]
     Active Substance: ALENDRONIC ACID
     Indication: Rheumatoid arthritis
     Route: 048
  184. ALENDRONIC ACID [Concomitant]
     Active Substance: ALENDRONIC ACID
     Route: 016
  185. ARAVA [Concomitant]
     Active Substance: LEFLUNOMIDE
     Indication: Rheumatoid arthritis
     Dosage: UNK
     Route: 048
  186. CALCIUM [Concomitant]
     Active Substance: CALCIUM
     Indication: Product used for unknown indication
  187. HYDROCORTISONE ACETATE [Concomitant]
     Active Substance: HYDROCORTISONE ACETATE
     Indication: Rheumatoid arthritis
  188. HYDROCORTISONE ACETATE [Concomitant]
     Active Substance: HYDROCORTISONE ACETATE
     Route: 061
  189. HYDROCORTISONE ACETATE [Concomitant]
     Active Substance: HYDROCORTISONE ACETATE
     Route: 048
  190. PANTOPRAZOLE [Concomitant]
     Active Substance: PANTOPRAZOLE
     Indication: Dyspepsia
     Route: 048
  191. QUETIAPINE FUMARATE [Concomitant]
     Active Substance: QUETIAPINE FUMARATE
     Indication: Product used for unknown indication
  192. RAMIPRIL [Concomitant]
     Active Substance: RAMIPRIL
     Indication: Product used for unknown indication
  193. VITAMIN C [Concomitant]
     Active Substance: ASCORBIC ACID
     Indication: Product used for unknown indication
  194. VITAMIN C [Concomitant]
     Active Substance: ASCORBIC ACID
  195. VITAMIN D3 [Concomitant]
     Active Substance: CHOLECALCIFEROL
     Indication: Product used for unknown indication
  196. ACETAMINOPHEN [Concomitant]
     Active Substance: ACETAMINOPHEN
     Indication: Product used for unknown indication
     Route: 016
  197. CAFFEINE CITRATE [Concomitant]
     Active Substance: CAFFEINE CITRATE
     Indication: Product used for unknown indication
  198. CAFFEINE CITRATE [Concomitant]
     Active Substance: CAFFEINE CITRATE
     Route: 064
  199. CODEINE [Concomitant]
     Active Substance: CODEINE
     Indication: Product used for unknown indication
  200. CODEINE [Concomitant]
     Active Substance: CODEINE
     Route: 064
  201. DIPHENHYDRAMINE HYDROCHLORIDE [Concomitant]
     Active Substance: DIPHENHYDRAMINE HYDROCHLORIDE
     Indication: Product used for unknown indication
  202. DIPHENHYDRAMINE HYDROCHLORIDE [Concomitant]
     Active Substance: DIPHENHYDRAMINE HYDROCHLORIDE
     Route: 064
  203. IBUPROFEN [Concomitant]
     Active Substance: IBUPROFEN
     Indication: Product used for unknown indication
  204. LISINOPRIL [Concomitant]
     Active Substance: LISINOPRIL
     Indication: Product used for unknown indication
  205. LISINOPRIL [Concomitant]
     Active Substance: LISINOPRIL
     Route: 064
  206. METHYLPREDNISOLONE SODIUM SUCCINATE [Concomitant]
     Active Substance: METHYLPREDNISOLONE SODIUM SUCCINATE
     Indication: Product used for unknown indication
  207. PSEUDOEPHEDRINE [Concomitant]
     Active Substance: PSEUDOEPHEDRINE
     Indication: Rheumatoid arthritis
  208. PSEUDOEPHEDRINE [Concomitant]
     Active Substance: PSEUDOEPHEDRINE
  209. CETIRIZINE HYDROCHLORIDE\PSEUDOEPHEDRINE HYDROCHLORIDE [Concomitant]
     Active Substance: CETIRIZINE HYDROCHLORIDE\PSEUDOEPHEDRINE HYDROCHLORIDE
     Indication: Rheumatoid arthritis
     Dosage: EXTENDED RELEASE TABLET
  210. CETIRIZINE HYDROCHLORIDE\PSEUDOEPHEDRINE HYDROCHLORIDE [Concomitant]
     Active Substance: CETIRIZINE HYDROCHLORIDE\PSEUDOEPHEDRINE HYDROCHLORIDE
     Dosage: EXTENDED RELEASE TABLET
     Route: 067
  211. PREDNISONE [Concomitant]
     Active Substance: PREDNISONE
     Indication: Rheumatoid arthritis
     Route: 048
  212. PREDNISONE [Concomitant]
     Active Substance: PREDNISONE
     Route: 064
  213. LEFLUNOMIDE [Concomitant]
     Active Substance: LEFLUNOMIDE
     Indication: Rheumatoid arthritis
  214. LEFLUNOMIDE [Concomitant]
     Active Substance: LEFLUNOMIDE
  215. LEFLUNOMIDE [Concomitant]
     Active Substance: LEFLUNOMIDE
  216. LEFLUNOMIDE [Concomitant]
     Active Substance: LEFLUNOMIDE
  217. LEFLUNOMIDE [Concomitant]
     Active Substance: LEFLUNOMIDE
  218. LEFLUNOMIDE [Concomitant]
     Active Substance: LEFLUNOMIDE
     Route: 048
  219. LEFLUNOMIDE [Concomitant]
     Active Substance: LEFLUNOMIDE
     Route: 048
  220. TOFACITINIB CITRATE [Concomitant]
     Active Substance: TOFACITINIB CITRATE
     Indication: Product used for unknown indication
     Route: 048
  221. TOPICORT [Concomitant]
     Active Substance: DESOXIMETASONE
     Indication: Rheumatoid arthritis
     Route: 058
  222. OXYCODONE HYDROCHLORIDE [Concomitant]
     Active Substance: OXYCODONE HYDROCHLORIDE
     Indication: Product used for unknown indication
  223. CALCIUM CARBONATE [Concomitant]
     Active Substance: CALCIUM CARBONATE
     Indication: Product used for unknown indication
  224. CALCIUM GLUCONATE [Concomitant]
     Active Substance: CALCIUM GLUCONATE
     Indication: Product used for unknown indication
  225. CALCIUM LACTATE [Concomitant]
     Active Substance: CALCIUM LACTATE
     Indication: Product used for unknown indication
  226. CALCIUM GLUBIONATE [Concomitant]
     Active Substance: CALCIUM GLUBIONATE
     Indication: Product used for unknown indication
  227. CETIRIZINE HYDROCHLORIDE [Concomitant]
     Active Substance: CETIRIZINE HYDROCHLORIDE
     Indication: Rheumatoid arthritis
  228. CETIRIZINE HYDROCHLORIDE [Concomitant]
     Active Substance: CETIRIZINE HYDROCHLORIDE
  229. DICLOFENAC POTASSIUM [Concomitant]
     Active Substance: DICLOFENAC POTASSIUM
     Indication: Product used for unknown indication
     Route: 058
  230. DICLOFENAC SODIUM [Concomitant]
     Active Substance: DICLOFENAC SODIUM
     Indication: Rheumatoid arthritis
     Route: 047
  231. DOCONEXENT [Concomitant]
     Active Substance: DOCONEXENT
     Indication: Product used for unknown indication
  232. ICOSAPENT [Concomitant]
     Active Substance: ICOSAPENT
     Indication: Product used for unknown indication
  233. ERGOCALCIFEROL [Concomitant]
     Active Substance: ERGOCALCIFEROL
     Indication: Product used for unknown indication
  234. GLUCOSAMINE [Concomitant]
     Active Substance: GLUCOSAMINE
     Indication: Product used for unknown indication
  235. HYDROXYCHLOROQUINE SULFATE [Concomitant]
     Active Substance: HYDROXYCHLOROQUINE SULFATE
     Indication: Rheumatoid arthritis
     Route: 048
  236. HYDROXYCHLOROQUINE SULFATE [Concomitant]
     Active Substance: HYDROXYCHLOROQUINE SULFATE
     Route: 016
  237. ISOPROPYL ALCOHOL [Concomitant]
     Active Substance: ISOPROPYL ALCOHOL
     Indication: Product used for unknown indication
     Route: 061
  238. LANSOPRAZOLE [Concomitant]
     Active Substance: LANSOPRAZOLE
     Indication: Product used for unknown indication
     Dosage: DELAYED RELEASE
  239. LORAZEPAM [Concomitant]
     Active Substance: LORAZEPAM
     Indication: Product used for unknown indication
  240. OXYCODONE TEREPHTHALATE [Concomitant]
     Active Substance: OXYCODONE TEREPHTHALATE
     Indication: Product used for unknown indication
  241. PHENYLEPHRINE HYDROCHLORIDE [Concomitant]
     Active Substance: PHENYLEPHRINE HYDROCHLORIDE
     Indication: Rheumatoid arthritis
  242. PSEUDOEPHEDRINE HYDROCHLORIDE [Concomitant]
     Active Substance: PSEUDOEPHEDRINE HYDROCHLORIDE
     Indication: Rheumatoid arthritis
     Route: 048
  243. PSEUDOEPHEDRINE HYDROCHLORIDE [Concomitant]
     Active Substance: PSEUDOEPHEDRINE HYDROCHLORIDE
     Route: 048
  244. PSEUDOEPHEDRINE HYDROCHLORIDE [Concomitant]
     Active Substance: PSEUDOEPHEDRINE HYDROCHLORIDE
     Route: 064
  245. TRIPROLIDINE [Concomitant]
     Active Substance: TRIPROLIDINE
     Indication: Product used for unknown indication
  246. TRIPROLIDINE [Concomitant]
     Active Substance: TRIPROLIDINE
     Route: 048
  247. CETIRIZINE HYDROCHLORIDE [Concomitant]
     Active Substance: CETIRIZINE HYDROCHLORIDE
     Indication: Rheumatoid arthritis
     Route: 048
  248. DIETARY SUPPLEMENT [Concomitant]
     Active Substance: DIETARY SUPPLEMENT
     Indication: Product used for unknown indication
  249. SOLU-MEDROL [Concomitant]
     Active Substance: METHYLPREDNISOLONE SODIUM SUCCINATE
     Indication: Product used for unknown indication
     Route: 064
  250. TYLENOL [Concomitant]
     Active Substance: ACETAMINOPHEN
     Indication: Product used for unknown indication
  251. SULFATHIAZOLE [Concomitant]
     Active Substance: SULFATHIAZOLE
     Indication: Product used for unknown indication
  252. CHLORHEXIDINE [Concomitant]
     Active Substance: CHLORHEXIDINE
     Indication: Product used for unknown indication
     Route: 061
  253. CHLORHEXIDINE GLUCONATE\ISOPROPYL ALCOHOL [Concomitant]
     Active Substance: CHLORHEXIDINE GLUCONATE\ISOPROPYL ALCOHOL
     Indication: Product used for unknown indication
  254. FLUMETHASONE PIVALATE [Concomitant]
     Active Substance: FLUMETHASONE PIVALATE
     Indication: Rheumatoid arthritis
     Route: 058
  255. MORPHINE [Concomitant]
     Active Substance: MORPHINE
     Indication: Product used for unknown indication
     Route: 048
  256. DICLOFENAC DIETHYLAMINE [Concomitant]
     Active Substance: DICLOFENAC DIETHYLAMINE
     Indication: Product used for unknown indication
  257. DOXYCYCLINE HYCLATE [Concomitant]
     Active Substance: DOXYCYCLINE HYCLATE
     Indication: Product used for unknown indication
  258. MESALAMINE [Concomitant]
     Active Substance: MESALAMINE
     Indication: Crohn^s disease
  259. BUPROPION HYDROCHLORIDE [Concomitant]
     Active Substance: BUPROPION HYDROCHLORIDE
  260. CORTISONE ACETATE [Concomitant]
     Active Substance: CORTISONE ACETATE
     Indication: Rheumatoid arthritis
  261. HYDROXYCHLOROQUINE [Concomitant]
     Active Substance: HYDROXYCHLOROQUINE
     Indication: Rheumatoid arthritis
  262. MINOCYCLINE HYDROCHLORIDE [Concomitant]
     Active Substance: MINOCYCLINE HYDROCHLORIDE
  263. PANTOPRAZOLE SODIUM [Concomitant]
     Active Substance: PANTOPRAZOLE SODIUM

REACTIONS (1)
  - Death [Fatal]
